FAERS Safety Report 15781686 (Version 1)
Quarter: 2018Q4

REPORT INFORMATION
  Report Type: Spontaneous
  Country: US (occurrence: US)
  Receive Date: 20181231
  Receipt Date: 20181231
  Transmission Date: 20190205
  Serious: Yes (Life-Threatening, Hospitalization)
  Sender: FDA-Public Use
  Company Number: None

PATIENT
  Age: 32 Year
  Sex: Female
  Weight: 56 kg

DRUGS (7)
  1. PREGABALIN. [Concomitant]
     Active Substance: PREGABALIN
  2. KRATOM SUPPLEMENT [Suspect]
     Active Substance: MITRAGYNINE\HERBALS
  3. DIAZEPAM. [Concomitant]
     Active Substance: DIAZEPAM
  4. GABAPENTIN. [Concomitant]
     Active Substance: GABAPENTIN
  5. CARBAMAZEPINE. [Concomitant]
     Active Substance: CARBAMAZEPINE
  6. DISULFIRAM. [Concomitant]
     Active Substance: DISULFIRAM
  7. VORTIOXETINE. [Concomitant]
     Active Substance: VORTIOXETINE

REACTIONS (3)
  - Seizure [None]
  - Dependence [None]
  - Loss of consciousness [None]

NARRATIVE: CASE EVENT DATE: 20181230
